FAERS Safety Report 7300089-6 (Version None)
Quarter: 2011Q1

REPORT INFORMATION
  Report Type: 
  Country: None (occurrence: None)
  Receive Date: 20110217
  Receipt Date: 20110207
  Transmission Date: 20110831
  Serious: Yes (Hospitalization)
  Sender: FDA-Public Use
  Company Number: US-BAXTER-2011BH002612

PATIENT
  Sex: Male

DRUGS (4)
  1. DIANEAL [Suspect]
     Indication: PERITONEAL DIALYSIS
     Route: 033
     Dates: end: 20110101
  2. DIANEAL [Suspect]
     Route: 033
     Dates: start: 20110101
  3. DIANEAL [Suspect]
     Indication: PERITONEAL DIALYSIS
     Route: 033
     Dates: end: 20110101
  4. DIANEAL [Suspect]
     Route: 033
     Dates: start: 20110101

REACTIONS (3)
  - INCORRECT DOSE ADMINISTERED [None]
  - BLOOD PRESSURE DECREASED [None]
  - WEIGHT DECREASED [None]
